FAERS Safety Report 23736893 (Version 1)
Quarter: 2024Q2

REPORT INFORMATION
  Report Type: Report from Study
  Country: CA (occurrence: CA)
  Receive Date: 20240412
  Receipt Date: 20240412
  Transmission Date: 20240716
  Serious: Yes (Hospitalization, Other)
  Sender: FDA-Public Use
  Company Number: CA-SUN PHARMACEUTICAL INDUSTRIES LTD-2024R1-440481

PATIENT
  Sex: Female
  Weight: 5.3 kg

DRUGS (2)
  1. TADALAFIL [Suspect]
     Active Substance: TADALAFIL
     Indication: Pulmonary hypertension
     Dosage: UNK
     Route: 065
  2. BOSENTAN [Suspect]
     Active Substance: BOSENTAN
     Indication: Pulmonary hypertension
     Dosage: UNK
     Route: 065

REACTIONS (3)
  - Iliac artery occlusion [Unknown]
  - Condition aggravated [Unknown]
  - Device failure [Unknown]
